FAERS Safety Report 24917268 (Version 1)
Quarter: 2025Q1

REPORT INFORMATION
  Report Type: Spontaneous
  Country: CN (occurrence: CN)
  Receive Date: 20250203
  Receipt Date: 20250203
  Transmission Date: 20250409
  Serious: Yes (Hospitalization)
  Sender: ALEXION PHARMACEUTICALS
  Company Number: CN-ASTRAZENECA-202501CHN027473CN

PATIENT
  Age: 78 Year
  Weight: 55 kg

DRUGS (1)
  1. BRILINTA [Suspect]
     Active Substance: TICAGRELOR
     Indication: Coronary artery disease
     Dosage: 90 MILLIGRAM, BID

REACTIONS (2)
  - Epistaxis [Recovered/Resolved]
  - Chest discomfort [Unknown]
